FAERS Safety Report 4763918-6 (Version None)
Quarter: 2005Q3

REPORT INFORMATION
  Report Type: 
  Country: None (occurrence: None)
  Receive Date: 20050906
  Receipt Date: 20050527
  Transmission Date: 20060218
  Serious: No
  Sender: FDA-Public Use
  Company Number: 2005-BP-08861BP

PATIENT
  Age: 71 Year
  Sex: Male

DRUGS (6)
  1. SPIRIVA [Suspect]
     Indication: CHRONIC OBSTRUCTIVE PULMONARY DISEASE
     Dosage: 18 MCG (18 MCG QD) PO
     Route: 048
     Dates: start: 20050526
  2. SINGULAIR (MONTELEUKAST) [Concomitant]
  3. ADVAIR DISKUS 100/50 [Concomitant]
  4. LEVOFLOXACIN [Concomitant]
  5. SOLU-MEDROL [Concomitant]
  6. THEOPHYLLINE SA (THEOPHYLLINE) [Concomitant]

REACTIONS (4)
  - DECREASED APPETITE [None]
  - DIZZINESS [None]
  - INCORRECT ROUTE OF DRUG ADMINISTRATION [None]
  - TREMOR [None]
